FAERS Safety Report 7312124-X (Version None)
Quarter: 2011Q1

REPORT INFORMATION
  Report Type: 
  Country: None (occurrence: None)
  Receive Date: 20110224
  Receipt Date: 20110215
  Transmission Date: 20110831
  Serious: Yes (Hospitalization)
  Sender: FDA-Public Use
  Company Number: US-SANOFI-AVENTIS-2011SA004789

PATIENT
  Age: 77 Year
  Sex: Male

DRUGS (11)
  1. ALLOPURINOL [Concomitant]
  2. SOLOSTAR [Suspect]
  3. VITAMIN D [Concomitant]
  4. LANTUS [Suspect]
     Route: 058
  5. DIOVAN HCT [Concomitant]
  6. TORSEMIDE [Concomitant]
  7. PACERONE [Concomitant]
  8. GLIMEPIRIDE [Suspect]
     Route: 065
  9. METOPROLOL TARTRATE [Concomitant]
  10. WARFARIN [Concomitant]
  11. PRAVASTATIN [Concomitant]

REACTIONS (3)
  - PRURITUS [None]
  - CHEST PAIN [None]
  - ATRIAL FIBRILLATION [None]
